FAERS Safety Report 5495185-2 (Version None)
Quarter: 2007Q4

REPORT INFORMATION
  Report Type: 
  Country: None (occurrence: None)
  Receive Date: 20071024
  Receipt Date: 20070711
  Transmission Date: 20080405
  Serious: No
  Sender: FDA-Public Use
  Company Number: US-AMGEN-US233290

PATIENT
  Sex: Female
  Weight: 67.6 kg

DRUGS (1)
  1. VECTIBIX [Suspect]
     Indication: COLORECTAL CANCER
     Route: 042
     Dates: start: 20070625

REACTIONS (3)
  - PRURITUS [None]
  - RASH [None]
  - SKIN EXFOLIATION [None]
